FAERS Safety Report 15369709 (Version 3)
Quarter: 2019Q2

REPORT INFORMATION
  Report Type: Report from Study
  Country: KR (occurrence: KR)
  Receive Date: 20180911
  Receipt Date: 20190411
  Transmission Date: 20190711
  Serious: Yes (Other)
  Sender: FDA-Public Use
  Company Number: KR-ROCHE-2181039

PATIENT
  Age: 76 Year
  Sex: Female

DRUGS (11)
  1. CYCLOPHOSPHAMIDE. [Suspect]
     Active Substance: CYCLOPHOSPHAMIDE
     Indication: NON-HODGKIN^S LYMPHOMA
     Dosage: CYCLE 2 (END ON 14/MAY/2018);?CYCLE 3 ON 04/JUN/2018 WITH 1260 MG DOSE (END ON SAME DAY);?CYCLE 4 ON
     Route: 042
     Dates: start: 20180514, end: 20180625
  2. DICAMAX [Concomitant]
     Indication: OSTEOPOROSIS
     Route: 048
     Dates: start: 20180430
  3. SEPTRIN [Concomitant]
     Active Substance: SULFAMETHOXAZOLE\TRIMETHOPRIM
     Route: 048
     Dates: start: 20180716
  4. VINCRISTINE [Suspect]
     Active Substance: VINCRISTINE
     Indication: NON-HODGKIN^S LYMPHOMA
     Dosage: CYCLE 2 (END ON 14/MAY/2018);?CYCLE 3 ON 04/JUN/2018 WITH 1 MG DOSE (END ON SAME DAY);?CYCLE 4 ON 25
     Route: 042
     Dates: start: 20180514, end: 20180625
  5. RITUXIMAB. [Suspect]
     Active Substance: RITUXIMAB
     Indication: NON-HODGKIN^S LYMPHOMA
     Route: 042
     Dates: start: 20180420
  6. PREDNISONE. [Suspect]
     Active Substance: PREDNISONE
     Indication: NON-HODGKIN^S LYMPHOMA
     Dosage: CYCLE 2 (END ON 14/MAY/2018);?CYCLE 3 ON 04/JUN/2018 WITH 35 MG DOSE (END ON SAME DAY);?CYCLE 4 ON 2
     Route: 048
     Dates: start: 20180514, end: 20180625
  7. NEXIUM [Concomitant]
     Active Substance: ESOMEPRAZOLE MAGNESIUM
     Indication: REFLUX LARYNGITIS
     Route: 048
  8. AMADIN [Concomitant]
     Indication: REFLUX LARYNGITIS
     Route: 048
  9. THIOCTACID [Concomitant]
     Active Substance: THIOCTIC ACID
     Indication: DIABETES MELLITUS
     Route: 048
  10. GASTIIN CR [Concomitant]
     Indication: REFLUX LARYNGITIS
     Route: 048
  11. RITUXIMAB. [Suspect]
     Active Substance: RITUXIMAB
     Indication: NON-HODGKIN^S LYMPHOMA
     Dosage: 1400 MG ON 04/JUN/2018 AND 25/JUN/2018
     Route: 058
     Dates: start: 20180514

REACTIONS (1)
  - Pneumonia [Recovered/Resolved]

NARRATIVE: CASE EVENT DATE: 20180716
